FAERS Safety Report 14962426 (Version 1)
Quarter: 2018Q2

REPORT INFORMATION
  Report Type: Spontaneous
  Country: US (occurrence: US)
  Receive Date: 20180510
  Receipt Date: 20180510
  Transmission Date: 20180711
  Serious: No
  Sender: FDA-Public Use
  Company Number: None

PATIENT
  Age: 46 Year
  Sex: Female

DRUGS (5)
  1. FLUOXETINE [Suspect]
     Active Substance: FLUOXETINE HYDROCHLORIDE
     Route: 048
  2. CLONAZEPAM 0.5MG [Concomitant]
     Active Substance: CLONAZEPAM
  3. GABAPENTIN 100MG [Concomitant]
     Active Substance: GABAPENTIN
  4. TIZANIDINE 4MG [Concomitant]
     Active Substance: TIZANIDINE
  5. RIZATRIPTAN 10MG [Concomitant]
     Active Substance: RIZATRIPTAN

REACTIONS (3)
  - Insomnia [None]
  - Product substitution issue [None]
  - Nervousness [None]

NARRATIVE: CASE EVENT DATE: 20180426
